FAERS Safety Report 20655513 (Version 1)
Quarter: 2022Q1

REPORT INFORMATION
  Report Type: Spontaneous
  Country: US (occurrence: None)
  Receive Date: 20220330
  Receipt Date: 20220330
  Transmission Date: 20220423
  Serious: No
  Sender: FDA-Public Use
  Company Number: None

PATIENT
  Age: 64 Year
  Sex: Male

DRUGS (2)
  1. NOREPINEPHRINE [Suspect]
     Active Substance: NOREPINEPHRINE
  2. DEVICE [Suspect]
     Active Substance: DEVICE

REACTIONS (2)
  - Hypertension [None]
  - Device delivery system issue [None]

NARRATIVE: CASE EVENT DATE: 20220310
